FAERS Safety Report 7347351-9 (Version None)
Quarter: 2011Q1

REPORT INFORMATION
  Report Type: 
  Country: None (occurrence: None)
  Receive Date: 20110303
  Receipt Date: 20110222
  Transmission Date: 20110831
  Serious: Yes (Other)
  Sender: FDA-Public Use
  Company Number: 2010US004957

PATIENT
  Age: 82 Year
  Sex: Female

DRUGS (19)
  1. TRAMADOL HCL [Concomitant]
  2. ALLOPURINOL [Concomitant]
  3. ZOLPIDEM [Concomitant]
  4. MOBIC [Concomitant]
  5. ASPIRIN [Concomitant]
  6. POTASSIUM (POTASSIUM) [Concomitant]
  7. SYNTHROID [Concomitant]
  8. FLUTICASONE PROPIONATE [Concomitant]
  9. CLOBETASOL PROPIONATE [Concomitant]
  10. PRAMIPEXOLE DIHYDROCHLORIDE [Concomitant]
  11. KETOCONAZOLE [Concomitant]
  12. SODIUM BICARBONATE IN PLASTIC CONTAINER [Concomitant]
  13. ALENDRONATE SODIUM [Concomitant]
  14. CEPHALEXIN [Concomitant]
  15. ACETAMINOPHEN [Concomitant]
  16. VESICARE [Suspect]
     Indication: HYPERTONIC BLADDER
     Dosage: 5 MG, UID/QD, ORAL
     Route: 048
     Dates: start: 20101102
  17. ENALAPRIL MALEATE [Concomitant]
  18. PROVIDONE IODINE (POVIDONE-IODINE) [Concomitant]
  19. GABAPENTIN [Concomitant]

REACTIONS (1)
  - MACULAR DEGENERATION [None]
